FAERS Safety Report 7270100-X (Version None)
Quarter: 2011Q1

REPORT INFORMATION
  Report Type: 
  Country: None (occurrence: None)
  Receive Date: 20110202
  Receipt Date: 20110104
  Transmission Date: 20110831
  Serious: No
  Sender: FDA-Public Use
  Company Number: US-BAYER-2011-003667

PATIENT
  Sex: Female
  Weight: 90 kg

DRUGS (4)
  1. DIGOXIN [Concomitant]
  2. ZETIA [Concomitant]
  3. ALEVE (CAPLET) [Suspect]
     Dosage: 440 MG, BID, BOTTLE COUNT 24S
     Route: 048
     Dates: start: 20110104
  4. ACCUPRIL [Concomitant]

REACTIONS (1)
  - NO ADVERSE EVENT [None]
